FAERS Safety Report 9821302 (Version 1)
Quarter: 2013Q4

REPORT INFORMATION
  Report Type: Spontaneous
  Country: US (occurrence: None)
  Receive Date: 20131028
  Receipt Date: 20131028
  Transmission Date: 20140711
  Serious: No
  Sender: FDA-Public Use
  Company Number: 2013US001209

PATIENT
  Age: 78 Year
  Sex: Male
  Weight: 68 kg

DRUGS (6)
  1. ICLUSIG [Suspect]
     Indication: CHRONIC MYELOID LEUKAEMIA
  2. ALLOPURINOL (ALLOPURINOL) [Concomitant]
  3. BABY ASPIRIN (ACETYLSALICYLIC ACID) [Concomitant]
  4. VITAMINS LIQUID [Concomitant]
  5. LEVOTHYROXINE (LEVOTHYROXINE) [Concomitant]
  6. PROBIOTICS [Concomitant]

REACTIONS (3)
  - Initial insomnia [None]
  - Fatigue [None]
  - Pain in extremity [None]
